FAERS Safety Report 4547256-2 (Version None)
Quarter: 2005Q1

REPORT INFORMATION
  Report Type: 
  Country: None (occurrence: None)
  Receive Date: 20050105
  Receipt Date: 20041222
  Transmission Date: 20050727
  Serious: Yes (Hospitalization, Disabling, Other)
  Sender: FDA-Public Use
  Company Number: 2004239806US

PATIENT
  Sex: Male
  Weight: 68.0396 kg

DRUGS (4)
  1. CELEBREX [Suspect]
     Indication: ARTHRITIS
     Dosage: 200 MG ORAL
     Route: 048
     Dates: start: 19980101, end: 20041006
  2. OMEPRAZOLE [Concomitant]
  3. DILTIAZEM HYDROCHLORIDE [Concomitant]
  4. ALPRAZOLAM [Concomitant]

REACTIONS (4)
  - CEREBROVASCULAR ACCIDENT [None]
  - LEG AMPUTATION [None]
  - MUSCLE SPASMS [None]
  - POOR PERIPHERAL CIRCULATION [None]
